FAERS Safety Report 7178006-1 (Version None)
Quarter: 2010Q4

REPORT INFORMATION
  Report Type: 
  Country: None (occurrence: None)
  Receive Date: 20101220
  Receipt Date: 20101209
  Transmission Date: 20110411
  Serious: Yes (Other)
  Sender: FDA-Public Use
  Company Number: US-JNJFOC-20101204249

PATIENT
  Sex: Female
  Weight: 88 kg

DRUGS (4)
  1. REMICADE [Suspect]
     Indication: COLITIS
     Route: 042
  2. REMICADE [Suspect]
     Route: 042
  3. LIALDA [Concomitant]
     Indication: COLITIS
  4. CANASA [Concomitant]
     Indication: COLITIS

REACTIONS (5)
  - CHEST DISCOMFORT [None]
  - DYSPNOEA [None]
  - FLUSHING [None]
  - HYPOAESTHESIA [None]
  - INFUSION RELATED REACTION [None]
